FAERS Safety Report 21290006 (Version 1)
Quarter: 2022Q3

REPORT INFORMATION
  Report Type: Spontaneous
  Country: CN (occurrence: CN)
  Receive Date: 20220902
  Receipt Date: 20220902
  Transmission Date: 20221026
  Serious: Yes (Hospitalization, Other)
  Sender: FDA-Public Use
  Company Number: None

PATIENT
  Age: 24 Year
  Sex: Male
  Weight: 84 kg

DRUGS (2)
  1. CYCLOPHOSPHAMIDE [Suspect]
     Active Substance: CYCLOPHOSPHAMIDE
     Indication: IgA nephropathy
     Dosage: DOSAGE FORM- INJECTION, 0.2 G, TWICE A WEEK (DILUTED WITH 0.9% SODIUM CHLORIDE 20 ML)
     Route: 042
     Dates: start: 20220802, end: 20220821
  2. SODIUM CHLORIDE [Suspect]
     Active Substance: SODIUM CHLORIDE
     Indication: Medication dilution
     Dosage: DOSAGE FORM- INJECTION, 20 ML, TWICE A WEEK (DILUTED WITH CYCLOPHOSPHAMIDE 0.2 G)
     Route: 042
     Dates: start: 20220802, end: 20220821

REACTIONS (2)
  - Liver injury [Unknown]
  - Hepatic function abnormal [Recovering/Resolving]

NARRATIVE: CASE EVENT DATE: 20220815
